FAERS Safety Report 13426748 (Version 5)
Quarter: 2018Q2

REPORT INFORMATION
  Report Type: Spontaneous
  Country: US (occurrence: US)
  Receive Date: 20170411
  Receipt Date: 20180405
  Transmission Date: 20180711
  Serious: No
  Sender: FDA-Public Use
  Company Number: US-PFIZER INC-2017149721

PATIENT
  Age: 58 Year
  Sex: Male

DRUGS (4)
  1. NICOTROL [Suspect]
     Active Substance: NICOTINE
     Indication: SMOKING CESSATION THERAPY
     Dosage: 10 MG, UNK (3 TO 4 TIMES AN HOUR)
     Dates: start: 201702, end: 201704
  2. VIAGRA [Concomitant]
     Active Substance: SILDENAFIL CITRATE
     Dosage: UNK
     Dates: start: 201701
  3. NICOTROL [Suspect]
     Active Substance: NICOTINE
     Indication: SMOKING CESSATION THERAPY
     Dosage: UNK, 1X/DAY (6-16 CARTRIDGES QD)
  4. LYRICA [Concomitant]
     Active Substance: PREGABALIN
     Dosage: UNK [3 YEARS]

REACTIONS (5)
  - Burning sensation [Recovered/Resolved]
  - Drug dispensing error [Unknown]
  - Sinus congestion [Recovered/Resolved]
  - Rhinalgia [Recovered/Resolved]
  - Nasal discomfort [Recovered/Resolved]

NARRATIVE: CASE EVENT DATE: 2017
